FAERS Safety Report 7753475-4 (Version None)
Quarter: 2011Q3

REPORT INFORMATION
  Report Type: 
  Country: None (occurrence: None)
  Receive Date: 20110915
  Receipt Date: 20110912
  Transmission Date: 20111222
  Serious: Yes (Hospitalization, Other)
  Sender: FDA-Public Use
  Company Number: GB-TEVA-288459ISR

PATIENT
  Age: 66 Year
  Sex: Female

DRUGS (8)
  1. AMISULPRIDE [Suspect]
     Indication: SCHIZOPHRENIA
     Dates: start: 20110401
  2. CLOZAPINE [Suspect]
     Route: 048
     Dates: start: 20030101, end: 20110228
  3. LEVOTHYROXINE SODIUM [Concomitant]
     Indication: HYPOTHYROIDISM
     Dosage: 50 MICROGRAM;
     Dates: start: 20100101
  4. CLOZAPINE [Suspect]
     Route: 048
     Dates: start: 20110401
  5. ACETYLSALICYLIC ACID SRT [Concomitant]
  6. CLOZAPINE [Suspect]
     Indication: SCHIZOPHRENIA
     Dosage: 125 MG AM, 300 MG PM
     Route: 048
     Dates: start: 20010305
  7. SIMVASTATIN [Suspect]
     Indication: BLOOD CHOLESTEROL INCREASED
     Dosage: 40 MILLIGRAM;
     Route: 048
     Dates: start: 20100101, end: 20110228
  8. AMISULPRIDE [Suspect]
     Dosage: 300 MILLIGRAM;
     Dates: start: 20030101, end: 20110228

REACTIONS (9)
  - BLOOD ALKALINE PHOSPHATASE INCREASED [None]
  - INTERNATIONAL NORMALISED RATIO INCREASED [None]
  - PNEUMONIA [None]
  - OVARIAN ADENOMA [None]
  - ALANINE AMINOTRANSFERASE INCREASED [None]
  - HYPOTHYROIDISM [None]
  - BLOOD BILIRUBIN INCREASED [None]
  - LIVER FUNCTION TEST ABNORMAL [None]
  - HAEMOGLOBIN DECREASED [None]
